FAERS Safety Report 24376502 (Version 1)
Quarter: 2024Q3

REPORT INFORMATION
  Report Type: Spontaneous
  Country: US (occurrence: None)
  Receive Date: 20240926
  Receipt Date: 20240926
  Transmission Date: 20241017
  Serious: Yes (Hospitalization)
  Sender: Public
  Company Number: None

PATIENT
  Age: 79 Year
  Sex: Male
  Weight: 134 kg

DRUGS (2)
  1. WARFARIN SODIUM [Suspect]
     Active Substance: WARFARIN SODIUM
     Indication: Atrial fibrillation
     Dates: start: 20230126, end: 20230823
  2. WARFARIN SODIUM [Suspect]
     Active Substance: WARFARIN SODIUM
     Indication: Mitral valve repair

REACTIONS (5)
  - Cerebral haemorrhage [None]
  - International normalised ratio increased [None]
  - Gait disturbance [None]
  - Subdural haematoma [None]
  - Seizure [None]

NARRATIVE: CASE EVENT DATE: 20230801
